FAERS Safety Report 17248749 (Version 1)
Quarter: 2020Q1

REPORT INFORMATION
  Report Type: Other
  Country: US (occurrence: US)
  Receive Date: 20200108
  Receipt Date: 20200108
  Transmission Date: 20200409
  Serious: No
  Sender: FDA-Public Use
  Company Number: US-AMAG PHARMACEUTICALS, INC.-AMAG201905743

PATIENT
  Age: 36 Year
  Sex: Female
  Weight: 83.99 kg

DRUGS (1)
  1. MAKENA [Suspect]
     Active Substance: HYDROXYPROGESTERONE CAPROATE
     Indication: PREMATURE DELIVERY
     Route: 058
     Dates: start: 20191022

REACTIONS (4)
  - Injection site pain [Unknown]
  - Hypoaesthesia [Unknown]
  - Product dose omission [Unknown]
  - Headache [Unknown]

NARRATIVE: CASE EVENT DATE: 20191029
